FAERS Safety Report 4372084-0 (Version None)
Quarter: 2004Q2

REPORT INFORMATION
  Report Type: 
  Country: None (occurrence: None)
  Receive Date: 20040601
  Receipt Date: 20040518
  Transmission Date: 20050107
  Serious: Yes (Hospitalization)
  Sender: FDA-Public Use
  Company Number: USA-2004-0015249

PATIENT
  Age: 50 Year
  Sex: Male

DRUGS (3)
  1. MS CONTIN [Suspect]
     Dosage: 60 MG, Q12H, UNKNOWN
     Dates: start: 20040426, end: 20040517
  2. BEXTRA [Concomitant]
  3. BACLOFEN [Concomitant]

REACTIONS (7)
  - ABDOMINAL PAIN [None]
  - CONSTIPATION [None]
  - HALLUCINATION [None]
  - PNEUMONIA [None]
  - POST PROCEDURAL COMPLICATION [None]
  - POSTOPERATIVE INFECTION [None]
  - WOUND ABSCESS [None]
